FAERS Safety Report 10130007 (Version 4)
Quarter: 2014Q2

REPORT INFORMATION
  Report Type: Spontaneous
  Country: FI (occurrence: FI)
  Receive Date: 20140428
  Receipt Date: 20140528
  Transmission Date: 20141212
  Serious: Yes (Hospitalization, Other)
  Sender: FDA-Public Use
  Company Number: PHHY2014FI050599

PATIENT
  Age: 50 Year
  Sex: Male

DRUGS (17)
  1. ACLASTA [Suspect]
     Indication: OSTEOPOROSIS
     Dosage: 5 MG, UNK
     Route: 042
     Dates: start: 20120604
  2. ACLASTA [Interacting]
     Dosage: 5 MG, UNK
     Route: 042
     Dates: start: 20130520, end: 20140507
  3. ALVESCO [Interacting]
     Dosage: 160 UG, BID {NORMALLY 2 DOSES PER DAY (IN ADDITION 1 DOSE TWICE DAILY)}
  4. ATROVENT ECO [Interacting]
     Indication: ASTHMA
     Dosage: 20 UG, AS NEEDED (WITH ATROVENT SOLUTION)
  5. PULMICORT [Interacting]
     Indication: ASTHMA
     Dosage: 1 TO 2 DOSES,2 TO 4 TIMES PER DAY
  6. NEBIDO [Interacting]
     Dosage: UNK
  7. TESTOGEL [Interacting]
     Indication: HORMONE LEVEL ABNORMAL
     Dosage: UNK
     Dates: start: 20121101, end: 201310
  8. CALCIUM + VITAMIN D [Concomitant]
     Indication: OSTEOPOROSIS
     Dosage: 1000MG+60UG
  9. CORTISONE [Concomitant]
     Indication: ASTHMA
     Dosage: INHALED CORTISONE
  10. CORTISONE [Concomitant]
     Dosage: CORTISONE TABLET
  11. TESTOSTERONE [Concomitant]
     Dosage: UNK UKN, UNK
  12. ACCOLATE [Concomitant]
     Dosage: 20 MG, BID
  13. DIAPAM [Concomitant]
     Indication: ARRHYTHMIA
     Dosage: UNK 1-2 TABLETS AS NEEDED
  14. ATROVENT [Concomitant]
     Dosage: UNK 1-4 DOSES PER DAY
  15. ZANTAC [Concomitant]
     Indication: GASTRIC ULCER
     Dosage: UNK
  16. KALCIPOS-D [Concomitant]
     Dosage: UNK (CALCIUM CARBONATE 500MG, VITAMIN-D) 2 TABLETS DAILY
  17. VITAMIN D NOS [Concomitant]
     Dosage: 20 UG, 2 TABLETS DAILY AS PER THE SEPARATE INSTRUCTIONS AS COURSE OF TREATMENT

REACTIONS (71)
  - Pneumonia [Recovered/Resolved]
  - Road traffic accident [Unknown]
  - Respiratory tract inflammation [Unknown]
  - Osteoporosis [Unknown]
  - Anaphylactic shock [Recovered/Resolved]
  - Azoospermia [Unknown]
  - Oligospermia [Unknown]
  - Renal disorder [Unknown]
  - Renal pain [Unknown]
  - Liver disorder [Unknown]
  - Hepatic pain [Unknown]
  - Osteopenia [Unknown]
  - Drug interaction [Unknown]
  - Ligament sprain [Unknown]
  - Trigeminal nerve disorder [Unknown]
  - Facial pain [Recovered/Resolved]
  - Hangover [Unknown]
  - Asthma [Unknown]
  - Sinusitis [Unknown]
  - Scleritis [Recovered/Resolved]
  - Bronchitis [Unknown]
  - Neuralgia [Unknown]
  - Heart rate increased [Unknown]
  - Arrhythmia [Unknown]
  - Pain [Unknown]
  - Dysuria [Unknown]
  - Gastrointestinal disorder [Unknown]
  - Dry eye [Unknown]
  - Mood swings [Unknown]
  - Hyperventilation [Unknown]
  - Hypogonadism [Unknown]
  - Decreased immune responsiveness [Unknown]
  - Visual field defect [Unknown]
  - Visual acuity tests abnormal [Unknown]
  - Photopsia [Unknown]
  - Vitreous floaters [Unknown]
  - Lacrimation increased [Unknown]
  - Ocular hyperaemia [Unknown]
  - Nystagmus [Unknown]
  - Photosensitivity reaction [Unknown]
  - Rhinitis [Unknown]
  - Eye swelling [Unknown]
  - Eyelid oedema [Unknown]
  - Foreign body sensation in eyes [Unknown]
  - Seasonal allergy [Unknown]
  - Testicular failure [Unknown]
  - Teratospermia [Unknown]
  - Romberg test positive [Unknown]
  - Atrial fibrillation [Unknown]
  - Uveitis [Unknown]
  - Pain in jaw [Unknown]
  - Musculoskeletal stiffness [Unknown]
  - Muscle spasms [Unknown]
  - Arthralgia [Unknown]
  - Bone pain [Unknown]
  - Neck pain [Unknown]
  - Pyrexia [Unknown]
  - Malaise [Unknown]
  - Bone density decreased [Unknown]
  - Tremor [Unknown]
  - Vision blurred [Unknown]
  - Insomnia [Unknown]
  - Eye pain [Unknown]
  - Myalgia [Unknown]
  - Headache [Unknown]
  - Hypersensitivity [Unknown]
  - Nausea [Unknown]
  - Iritis [Unknown]
  - Therapeutic response decreased [Unknown]
  - Conjunctivitis [Unknown]
  - Eye discharge [Unknown]
